FAERS Safety Report 8199563-2 (Version None)
Quarter: 2012Q1

REPORT INFORMATION
  Report Type: 
  Country: None (occurrence: None)
  Receive Date: 20120310
  Receipt Date: 20111222
  Transmission Date: 20120608
  Serious: No
  Sender: FDA-Public Use
  Company Number: CA-PFIZER INC-2011312923

PATIENT
  Sex: Female
  Weight: 59.864 kg

DRUGS (1)
  1. XALKORI [Suspect]
     Indication: LUNG NEOPLASM MALIGNANT
     Dosage: 250 MG, 2X/DAY
     Route: 048
     Dates: start: 20111221

REACTIONS (2)
  - VOMITING [None]
  - DIARRHOEA [None]
